FAERS Safety Report 9459149 (Version 1)
Quarter: 2013Q3

REPORT INFORMATION
  Report Type: Spontaneous
  Country: AT (occurrence: AT)
  Receive Date: 20130814
  Receipt Date: 20130814
  Transmission Date: 20140515
  Serious: Yes (Death)
  Sender: FDA-Public Use
  Company Number: AT-VERTEX PHARMACEUTICALS INC-AE-2012-009537

PATIENT
  Age: 36 Year
  Sex: Male
  Weight: 34 kg

DRUGS (4)
  1. INCIVO [Suspect]
     Indication: CHRONIC HEPATITIS C
     Dosage: 1125 MG, QD (3 DOSAGES OF 375MG)
     Route: 048
     Dates: start: 20120223, end: 20120511
  2. PEG-INTRON [Concomitant]
     Indication: CHRONIC HEPATITIS C
     Dosage: 30 ?G, QW
     Route: 058
     Dates: start: 20111212, end: 20120511
  3. RIBAVIRIN [Concomitant]
     Indication: CHRONIC HEPATITIS C
     Dosage: 200 MG, BID
     Route: 048
     Dates: start: 20111212, end: 20120511
  4. DOMINAL [Concomitant]
     Dosage: 80 MG, UNK
     Route: 048

REACTIONS (5)
  - Liver disorder [Fatal]
  - Skin necrosis [Fatal]
  - Skin ulcer [Fatal]
  - Sepsis [Fatal]
  - Empyema [Fatal]
